FAERS Safety Report 5171707-6 (Version None)
Quarter: 2006Q4

REPORT INFORMATION
  Report Type: 
  Country: None (occurrence: None)
  Receive Date: 20061213
  Receipt Date: 20061011
  Transmission Date: 20070319
  Serious: Yes (Hospitalization)
  Sender: FDA-Public Use
  Company Number: CA-BRISTOL-MYERS SQUIBB COMPANY-13538343

PATIENT
  Age: 51 Year
  Sex: Female

DRUGS (10)
  1. ABATACEPT [Suspect]
     Indication: RHEUMATOID ARTHRITIS
     Route: 042
     Dates: start: 20040218
  2. METHOTREXATE [Suspect]
     Indication: RHEUMATOID ARTHRITIS
     Route: 058
     Dates: start: 20020311
  3. ARTHROTEC [Concomitant]
     Route: 048
     Dates: start: 19970801
  4. FERROUS GLUCONATE [Concomitant]
     Route: 048
     Dates: start: 19990101
  5. FOSAMAX [Concomitant]
     Route: 048
     Dates: start: 20001201
  6. FOLIC ACID [Concomitant]
     Route: 048
     Dates: start: 19990101
  7. CALTRATE [Concomitant]
     Route: 048
     Dates: start: 20050301
  8. SYNTHROID [Concomitant]
     Route: 048
     Dates: start: 20060309
  9. BENADRYL [Concomitant]
     Route: 048
     Dates: start: 20060622
  10. MULTI-VITAMIN [Concomitant]
     Route: 048
     Dates: start: 20021101

REACTIONS (6)
  - BLOOD ALBUMIN DECREASED [None]
  - BLOOD CALCIUM DECREASED [None]
  - BLOOD MAGNESIUM DECREASED [None]
  - EXTRANODAL MARGINAL ZONE B-CELL LYMPHOMA (MALT TYPE) [None]
  - GOITRE [None]
  - THYROIDITIS FIBROUS CHRONIC [None]
